FAERS Safety Report 10945686 (Version 1)
Quarter: 2015Q1

REPORT INFORMATION
  Report Type: Spontaneous
  Country: US (occurrence: None)
  Receive Date: 20150212
  Receipt Date: 20150212
  Transmission Date: 20150721
  Serious: No
  Sender: FDA-Public Use
  Company Number: TPA2011A01512

PATIENT
  Age: 81 Year
  Sex: Female

DRUGS (1)
  1. ULORIC [Suspect]
     Active Substance: FEBUXOSTAT
     Indication: GOUT
     Route: 048
     Dates: start: 201104

REACTIONS (4)
  - Tremor [None]
  - Oedema peripheral [None]
  - Feeling cold [None]
  - Hot flush [None]

NARRATIVE: CASE EVENT DATE: 201104
